FAERS Safety Report 8961661 (Version 1)
Quarter: 2012Q4

REPORT INFORMATION
  Report Type: 
  Country: US (occurrence: US)
  Receive Date: 20121212
  Receipt Date: 20121212
  Transmission Date: 20130627
  Serious: Yes (Other)
  Sender: FDA-Public Use
  Company Number: US-COVIDIEN/TYCO HEALTHCARE/MALLINCKRODT-T201204205

PATIENT
  Age: 66 None
  Sex: Female

DRUGS (6)
  1. FENTANYL TRANSDERMAL SYSTEM [Suspect]
     Indication: MYALGIA
     Dosage: 25 mcg/hr q 72 hrs
     Route: 062
     Dates: start: 20121117, end: 20121126
  2. FENTANYL TRANSDERMAL SYSTEM [Suspect]
     Indication: NEURALGIA
     Dosage: 50 mcg/hr q 72 hrs
     Route: 062
     Dates: start: 20121127
  3. FENTANYL [Suspect]
     Indication: MYALGIA
     Dosage: 25 mcg/hr q 72 hrs
     Route: 062
     Dates: start: 20121117, end: 20121126
  4. FENTANYL [Suspect]
     Indication: NEURALGIA
     Dosage: 50 mcg/hr q 72 hrs
     Route: 062
     Dates: start: 20121127
  5. OXYCODONE [Concomitant]
     Indication: MYALGIA
     Dosage: 5 mg, up to six tabs qd
     Route: 048
     Dates: start: 201209
  6. OXYCODONE [Concomitant]
     Indication: NEURALGIA

REACTIONS (4)
  - Vision blurred [Not Recovered/Not Resolved]
  - Pain [Recovering/Resolving]
  - Oedema peripheral [Not Recovered/Not Resolved]
  - Bronchitis [Unknown]
